FAERS Safety Report 20757759 (Version 9)
Quarter: 2024Q2

REPORT INFORMATION
  Report Type: Spontaneous
  Country: JP (occurrence: None)
  Receive Date: 20220427
  Receipt Date: 20240510
  Transmission Date: 20240716
  Serious: Yes (Hospitalization, Other)
  Sender: FDA-Public Use
  Company Number: 2022A158975

PATIENT
  Age: 87 Year
  Sex: Male
  Weight: 54 kg

DRUGS (14)
  1. DAPAGLIFLOZIN [Suspect]
     Active Substance: DAPAGLIFLOZIN
     Indication: Cardiac failure chronic
     Route: 048
     Dates: start: 20220402, end: 20220419
  2. TIRABRUTINIB HYDROCHLORIDE [Suspect]
     Active Substance: TIRABRUTINIB HYDROCHLORIDE
     Indication: Lymphoplasmacytoid lymphoma/immunocytoma
     Route: 048
     Dates: start: 20220406, end: 20220606
  3. TIRABRUTINIB HYDROCHLORIDE [Suspect]
     Active Substance: TIRABRUTINIB HYDROCHLORIDE
     Indication: Lymphoplasmacytoid lymphoma/immunocytoma
     Route: 048
     Dates: start: 20220706
  4. ZOVIRAX [Suspect]
     Active Substance: ACYCLOVIR
     Indication: Pleural effusion
     Route: 048
     Dates: start: 20220406, end: 20220419
  5. XARELTO [Suspect]
     Active Substance: RIVAROXABAN
     Dosage: DOSE UNKNOWN
     Route: 048
     Dates: end: 20220607
  6. RITUXAN [Concomitant]
     Active Substance: RITUXIMAB
     Indication: Pleural effusion
     Dosage: DOSE UNKNOWN
     Dates: start: 2021
  7. PLAVIX [Concomitant]
     Active Substance: CLOPIDOGREL BISULFATE
     Dosage: DOSE UNKNOWN
     Route: 048
  8. ACYCLOVIR [Concomitant]
     Active Substance: ACYCLOVIR
     Indication: Prophylaxis
     Dosage: DOSE UNKNOWN
  9. SULFAMETHOXAZOLE\TRIMETHOPRIM [Concomitant]
     Active Substance: SULFAMETHOXAZOLE\TRIMETHOPRIM
     Indication: Prophylaxis
     Dosage: DOSE UNKNOWN
     Route: 048
     Dates: start: 20220406, end: 20220419
  10. LASIX [Concomitant]
     Active Substance: FUROSEMIDE
     Dosage: 20 MG
     Route: 048
     Dates: end: 20220610
  11. LASIX [Concomitant]
     Active Substance: FUROSEMIDE
     Dosage: 10 MG
     Route: 048
     Dates: start: 20220401, end: 20220420
  12. EPLERENONE [Concomitant]
     Active Substance: EPLERENONE
     Route: 048
     Dates: start: 20220401, end: 20220420
  13. TEPRENONE [Concomitant]
     Active Substance: TEPRENONE
     Route: 048
  14. ISOSORBIDE [Concomitant]
     Active Substance: ISOSORBIDE
     Route: 048
     Dates: end: 20220615

REACTIONS (5)
  - Urinary retention [Recovered/Resolved]
  - Postrenal failure [Recovered/Resolved]
  - Haemothorax [Recovering/Resolving]
  - Dehydration [Recovering/Resolving]
  - Hyperhidrosis [Unknown]

NARRATIVE: CASE EVENT DATE: 20220101
